FAERS Safety Report 20350647 (Version 1)
Quarter: 2022Q1

REPORT INFORMATION
  Report Type: Spontaneous
  Country: US (occurrence: US)
  Receive Date: 20220119
  Receipt Date: 20220119
  Transmission Date: 20220424
  Serious: No
  Sender: FDA-Public Use
  Company Number: US-SA-SAC20220117000198

PATIENT
  Age: 40 Year
  Sex: Female

DRUGS (1)
  1. DUPIXENT [Suspect]
     Active Substance: DUPILUMAB
     Dosage: 300 MG, FREQUENCY OTHER
     Route: 058
     Dates: start: 202106

REACTIONS (4)
  - Dry mouth [Unknown]
  - Dry throat [Unknown]
  - Dry skin [Unknown]
  - Rash papular [Unknown]

NARRATIVE: CASE EVENT DATE: 20220111
